FAERS Safety Report 6127928-9 (Version None)
Quarter: 2009Q1

REPORT INFORMATION
  Report Type: 
  Country: None (occurrence: None)
  Receive Date: 20090319
  Receipt Date: 20090310
  Transmission Date: 20090719
  Serious: Yes (Other)
  Sender: FDA-Public Use
  Company Number: 2009SP004760

PATIENT
  Sex: Female

DRUGS (25)
  1. REBETOL [Suspect]
     Indication: HEPATITIS C
     Dosage: 1200 MG;PO ; 1200 MG;PO ; 600 MG; 800 MG;PO ; 1000 MG;PO ; 800 MG;PO ; 800 MG;PO
     Route: 048
     Dates: start: 20080404, end: 20080724
  2. REBETOL [Suspect]
     Indication: HEPATITIS C
     Dosage: 1200 MG;PO ; 1200 MG;PO ; 600 MG; 800 MG;PO ; 1000 MG;PO ; 800 MG;PO ; 800 MG;PO
     Route: 048
     Dates: start: 20070824
  3. REBETOL [Suspect]
     Indication: HEPATITIS C
     Dosage: 1200 MG;PO ; 1200 MG;PO ; 600 MG; 800 MG;PO ; 1000 MG;PO ; 800 MG;PO ; 800 MG;PO
     Route: 048
     Dates: start: 20070901
  4. REBETOL [Suspect]
     Indication: HEPATITIS C
     Dosage: 1200 MG;PO ; 1200 MG;PO ; 600 MG; 800 MG;PO ; 1000 MG;PO ; 800 MG;PO ; 800 MG;PO
     Route: 048
     Dates: start: 20071020
  5. REBETOL [Suspect]
     Indication: HEPATITIS C
     Dosage: 1200 MG;PO ; 1200 MG;PO ; 600 MG; 800 MG;PO ; 1000 MG;PO ; 800 MG;PO ; 800 MG;PO
     Route: 048
     Dates: start: 20071027
  6. REBETOL [Suspect]
     Indication: HEPATITIS C
     Dosage: 1200 MG;PO ; 1200 MG;PO ; 600 MG; 800 MG;PO ; 1000 MG;PO ; 800 MG;PO ; 800 MG;PO
     Route: 048
     Dates: start: 20071116
  7. REBETOL [Suspect]
     Indication: HEPATITIS C
     Dosage: 1200 MG;PO ; 1200 MG;PO ; 600 MG; 800 MG;PO ; 1000 MG;PO ; 800 MG;PO ; 800 MG;PO
     Route: 048
     Dates: start: 20071201
  8. PEG-INTRON [Suspect]
     Indication: HEPATITIS C
     Dosage: SEE IMAGE
     Route: 058
     Dates: start: 20070824
  9. PEG-INTRON [Suspect]
     Indication: HEPATITIS C
     Dosage: SEE IMAGE
     Route: 058
     Dates: start: 20070901
  10. PEG-INTRON [Suspect]
     Indication: HEPATITIS C
     Dosage: SEE IMAGE
     Route: 058
     Dates: start: 20071020
  11. PEG-INTRON [Suspect]
     Indication: HEPATITIS C
     Dosage: SEE IMAGE
     Route: 058
     Dates: start: 20071027
  12. PEG-INTRON [Suspect]
     Indication: HEPATITIS C
     Dosage: SEE IMAGE
     Route: 058
     Dates: start: 20071116
  13. PEG-INTRON [Suspect]
     Indication: HEPATITIS C
     Dosage: SEE IMAGE
     Route: 058
     Dates: start: 20071201
  14. PEG-INTRON [Suspect]
     Indication: HEPATITIS C
     Dosage: SEE IMAGE
     Route: 058
     Dates: start: 20080404
  15. INSULIN ACTRAPID [Concomitant]
  16. INSULATARD [Concomitant]
  17. MODURETIC 5-50 [Concomitant]
  18. LORISTA [Concomitant]
  19. KANAVIT [Concomitant]
  20. AESCIN /00337201/ [Concomitant]
  21. PREDUTCAL [Concomitant]
  22. ZYRTEC [Concomitant]
  23. AKTIFERRIN /00023503/ [Concomitant]
  24. VITAMIN B-12 [Concomitant]
  25. ACIDUM FOLLICUM [Concomitant]

REACTIONS (5)
  - ANAEMIA [None]
  - DIZZINESS [None]
  - DYSPNOEA [None]
  - FATIGUE [None]
  - WEIGHT DECREASED [None]
